FAERS Safety Report 21926196 (Version 1)
Quarter: 2023Q1

REPORT INFORMATION
  Report Type: Spontaneous
  Country: CH (occurrence: CH)
  Receive Date: 20230130
  Receipt Date: 20230130
  Transmission Date: 20230417
  Serious: Yes (Other)
  Sender: FDA-Public Use
  Company Number: None

PATIENT
  Sex: Male

DRUGS (2)
  1. GILENYA [Suspect]
     Active Substance: FINGOLIMOD HYDROCHLORIDE
     Indication: Foetal exposure during pregnancy
     Dosage: UNK (MATERNAL DOSE: UNKNOWN)
     Route: 064
     Dates: start: 20220501, end: 20220603
  2. TYSABRI [Suspect]
     Active Substance: NATALIZUMAB
     Indication: Foetal exposure during pregnancy
     Dosage: UNK (MATERNAL DOSE: UNKNOWN)
     Route: 064
     Dates: start: 20220817, end: 20221109

REACTIONS (2)
  - Foetal growth restriction [Not Recovered/Not Resolved]
  - Foetal exposure during pregnancy [Recovered/Resolved]

NARRATIVE: CASE EVENT DATE: 20220501
